FAERS Safety Report 4878082-2 (Version None)
Quarter: 2006Q1

REPORT INFORMATION
  Report Type: 
  Country: None (occurrence: None)
  Receive Date: 20060110
  Receipt Date: 20051228
  Transmission Date: 20060701
  Serious: Yes (Hospitalization)
  Sender: FDA-Public Use
  Company Number: GBR-2005-0002049

PATIENT
  Age: 82 Year
  Sex: Male

DRUGS (1)
  1. MORPHINE SULFATE [Suspect]
     Dosage: 20 MG, DAILY, ORAL
     Route: 048
     Dates: start: 20051111

REACTIONS (2)
  - LOSS OF CONSCIOUSNESS [None]
  - UNRESPONSIVE TO VERBAL STIMULI [None]
